FAERS Safety Report 7331193-4 (Version None)
Quarter: 2011Q1

REPORT INFORMATION
  Report Type: 
  Country: None (occurrence: None)
  Receive Date: 20110304
  Receipt Date: 20110228
  Transmission Date: 20110831
  Serious: Yes (Hospitalization)
  Sender: FDA-Public Use
  Company Number: IT-PFIZER INC-2011043863

PATIENT
  Age: 74 Year
  Sex: Male

DRUGS (3)
  1. ERBITUX [Suspect]
     Indication: RECTAL CANCER
     Dosage: 435 MG, CYCLIC
     Route: 042
     Dates: start: 20101210, end: 20110113
  2. CAMPTOSAR [Suspect]
     Indication: RECTAL CANCER
     Dosage: 313 MG, CYCLIC
     Route: 042
     Dates: start: 20101126, end: 20110113
  3. FLUOROURACILE HOSPIRA [Suspect]
     Indication: RECTAL CANCER
     Dosage: 2800 MG, CYCLIC
     Route: 042
     Dates: start: 20101126, end: 20110113

REACTIONS (2)
  - RASH [None]
  - SKIN ULCER [None]
